FAERS Safety Report 13390614 (Version 1)
Quarter: 2017Q1

REPORT INFORMATION
  Report Type: Spontaneous
  Country: US (occurrence: US)
  Receive Date: 20170331
  Receipt Date: 20170331
  Transmission Date: 20170429
  Serious: No
  Sender: FDA-Public Use
  Company Number: US-PFIZER INC-2017142371

PATIENT
  Age: 18 Year
  Sex: Female
  Weight: 49.9 kg

DRUGS (3)
  1. ZOLOFT [Suspect]
     Active Substance: SERTRALINE HYDROCHLORIDE
     Indication: ANXIETY
     Dosage: 50 MG, 1X/DAY, AT NIGHT
     Route: 048
     Dates: start: 20170326
  2. ZOLOFT [Suspect]
     Active Substance: SERTRALINE HYDROCHLORIDE
     Indication: DEPRESSION
  3. DEPO-PROVERA [Concomitant]
     Active Substance: MEDROXYPROGESTERONE ACETATE
     Indication: CONTRACEPTION
     Dosage: 100 MG, EVERY 3 MONTHS (INJECTION IN ARM)
     Dates: start: 201612

REACTIONS (1)
  - Dysgeusia [Recovering/Resolving]

NARRATIVE: CASE EVENT DATE: 20170329
